FAERS Safety Report 10040997 (Version 2)
Quarter: 2014Q1

REPORT INFORMATION
  Report Type: Spontaneous
  Country: US (occurrence: US)
  Receive Date: 20140327
  Receipt Date: 20140330
  Transmission Date: 20141002
  Serious: No
  Sender: FDA-Public Use
  Company Number: US-009507513-1403USA011734

PATIENT
  Age: 65 Year
  Sex: Female

DRUGS (4)
  1. PEGINTRON [Suspect]
     Indication: HEPATITIS C
     Dosage: DOSE - 0.5 CC, QW, REDIPEN PEG-INTRON
     Route: 058
     Dates: start: 20140315
  2. REBETOL [Suspect]
     Indication: HEPATITIS C
     Dosage: 1 DF, QAM, FREQUENCY- BID(TWICE A DAY)
     Route: 048
     Dates: start: 20140315
  3. REBETOL [Suspect]
     Dosage: 1 DF, QPM, FREQUENCY- BID (TWICE A DAY)
     Route: 048
     Dates: start: 20140315
  4. SOVALDI [Concomitant]
     Dosage: 1 DF, QD
     Route: 048

REACTIONS (1)
  - Fatigue [Unknown]
